FAERS Safety Report 4339444-5 (Version None)
Quarter: 2004Q2

REPORT INFORMATION
  Report Type: 
  Country: None (occurrence: None)
  Receive Date: 20040415
  Receipt Date: 20040316
  Transmission Date: 20050107
  Serious: Yes (Hospitalization, Disabling)
  Sender: FDA-Public Use
  Company Number: JP-GLAXOSMITHKLINE-B0327355A

PATIENT
  Age: 48 Year
  Sex: Female

DRUGS (7)
  1. ZANTAC [Suspect]
     Indication: GASTROINTESTINAL MUCOSAL DISORDER
     Dosage: 150MG TWICE PER DAY
     Route: 048
     Dates: start: 20040221, end: 20040302
  2. ZANTAC [Suspect]
     Dosage: 200MG PER DAY
     Route: 042
     Dates: start: 20040213, end: 20040302
  3. PREDNISOLONE [Concomitant]
     Route: 048
     Dates: start: 20040219, end: 20040318
  4. FOLIAMIN [Concomitant]
     Dosage: 15MG PER DAY
     Route: 048
     Dates: start: 20040217, end: 20040305
  5. SULFAMETHOXAZOLE + TRIMETHOPRIM [Concomitant]
     Dosage: 1U PER DAY
     Route: 048
     Dates: start: 20040223, end: 20040229
  6. METHYLPREDNISOLONE SODIUM SUCCINATE [Concomitant]
     Dosage: 1U PER DAY
     Route: 042
     Dates: start: 20040212, end: 20040215
  7. CEFTAZIDIME [Concomitant]
     Dosage: 2U PER DAY
     Route: 042
     Dates: start: 20040212, end: 20040216

REACTIONS (7)
  - ALANINE AMINOTRANSFERASE INCREASED [None]
  - ASPARTATE AMINOTRANSFERASE INCREASED [None]
  - DECREASED APPETITE [None]
  - GAMMA-GLUTAMYLTRANSFERASE INCREASED [None]
  - HEPATIC ENZYME INCREASED [None]
  - LIVER DISORDER [None]
  - MALAISE [None]
